FAERS Safety Report 21714930 (Version 11)
Quarter: 2023Q2

REPORT INFORMATION
  Report Type: Report from Study
  Country: CN (occurrence: None)
  Receive Date: 20221212
  Receipt Date: 20230628
  Transmission Date: 20230722
  Serious: Yes (Hospitalization)
  Sender: FDA-Public Use
  Company Number: CN-ROCHE-3231609

PATIENT
  Sex: Male
  Weight: 53 kg

DRUGS (32)
  1. BEVACIZUMAB [Suspect]
     Active Substance: BEVACIZUMAB
     Indication: Small cell lung cancer extensive stage
     Dosage: ON 11/NOV/2022, RECEIVED MOST RECENT DOSE OF LAST STUDY BEVACIZUMAB PRIOR TO ADVERSE EVENT (AE) AND
     Route: 042
     Dates: start: 20220929
  2. ATEZOLIZUMAB [Suspect]
     Active Substance: ATEZOLIZUMAB
     Indication: Small cell lung cancer extensive stage
     Dosage: ON 11/NOV/2022, RECEIVED MOST RECENT DOSE OF LAST STUDY ATEZOLIZUMAB PRIOR TO ADVERSE EVENT (AE) AND
     Route: 041
     Dates: start: 20220929
  3. ETOPOSIDE [Suspect]
     Active Substance: ETOPOSIDE
     Indication: Small cell lung cancer extensive stage
     Dosage: ON 11/NOV/2022, RECEIVED MOST RECENT DOSE OF LAST STUDY ETOPOSIDE: PRIOR TO ADVERSE EVENT (AE) AND S
     Route: 042
     Dates: start: 20220929
  4. CARBOPLATIN [Suspect]
     Active Substance: CARBOPLATIN
     Indication: Small cell lung cancer extensive stage
     Dosage: ON 11/NOV/2022, RECEIVED MOST RECENT DOSE OF LAST STUDY CARBOPLATIN PRIOR TO ADVERSE EVENT (AE) AND
     Route: 042
     Dates: start: 20220929
  5. APREPITANT [Concomitant]
     Active Substance: APREPITANT
     Route: 048
     Dates: start: 20220929, end: 20221001
  6. APREPITANT [Concomitant]
     Active Substance: APREPITANT
     Route: 048
     Dates: start: 20221021, end: 20221023
  7. APREPITANT [Concomitant]
     Active Substance: APREPITANT
     Route: 048
     Dates: start: 20221111, end: 20221113
  8. FUROSEMIDE [Concomitant]
     Active Substance: FUROSEMIDE
     Route: 042
     Dates: start: 20221111, end: 20221113
  9. SODIUM BICARBONATE [Concomitant]
     Active Substance: SODIUM BICARBONATE
     Route: 042
     Dates: start: 20221111, end: 20221113
  10. POTASSIUM CHLORIDE [Concomitant]
     Active Substance: POTASSIUM CHLORIDE
     Route: 042
     Dates: start: 20221002, end: 20221002
  11. POTASSIUM CHLORIDE [Concomitant]
     Active Substance: POTASSIUM CHLORIDE
     Route: 042
     Dates: start: 20221111, end: 20221114
  12. VITAMIN C [Concomitant]
     Active Substance: ASCORBIC ACID
     Route: 042
     Dates: start: 20221111, end: 20221114
  13. VITAMIN C [Concomitant]
     Active Substance: ASCORBIC ACID
     Dates: start: 20221210, end: 20221220
  14. VITAMIN C [Concomitant]
     Active Substance: ASCORBIC ACID
     Dates: start: 20221208, end: 20221208
  15. VITAMIN B6 [Concomitant]
     Active Substance: PYRIDOXINE HYDROCHLORIDE
     Route: 042
     Dates: start: 20221111, end: 20221114
  16. VITAMIN B6 [Concomitant]
     Active Substance: PYRIDOXINE HYDROCHLORIDE
     Dates: start: 20221210, end: 20221220
  17. VITAMIN B6 [Concomitant]
     Active Substance: PYRIDOXINE HYDROCHLORIDE
     Dates: start: 20221208, end: 20221208
  18. VALPROATE SODIUM [Concomitant]
     Active Substance: VALPROATE SODIUM
     Indication: Seizure
     Route: 048
     Dates: start: 2022, end: 20221202
  19. VALPROATE SODIUM [Concomitant]
     Active Substance: VALPROATE SODIUM
     Dates: start: 20221208, end: 20221208
  20. VALPROATE SODIUM [Concomitant]
     Active Substance: VALPROATE SODIUM
     Dates: start: 20221209, end: 20221210
  21. VALPROATE SODIUM [Concomitant]
     Active Substance: VALPROATE SODIUM
     Route: 048
     Dates: start: 20221202, end: 20221205
  22. VALPROATE SODIUM [Concomitant]
     Active Substance: VALPROATE SODIUM
     Route: 048
     Dates: start: 20221206
  23. VALPROATE SODIUM [Concomitant]
     Active Substance: VALPROATE SODIUM
     Route: 048
     Dates: start: 20221122
  24. VALPROATE SODIUM [Concomitant]
     Active Substance: VALPROATE SODIUM
  25. ACYCLOVIR [Concomitant]
     Active Substance: ACYCLOVIR
     Dates: start: 20221210, end: 20221210
  26. FRUCTOSE\GLYCERIN\SODIUM CHLORIDE [Concomitant]
     Active Substance: FRUCTOSE\GLYCERIN\SODIUM CHLORIDE
     Dates: start: 20221210, end: 20221220
  27. FRUCTOSE\GLYCERIN\SODIUM CHLORIDE [Concomitant]
     Active Substance: FRUCTOSE\GLYCERIN\SODIUM CHLORIDE
     Dates: start: 20221208, end: 20221210
  28. ACYCLOVIR [Concomitant]
     Active Substance: ACYCLOVIR
     Dates: start: 20221210, end: 20221220
  29. ACETYLCYSTEINE [Concomitant]
     Active Substance: ACETYLCYSTEINE
     Dates: start: 20221209, end: 20221210
  30. ALBUTEROL SULFATE [Concomitant]
     Active Substance: ALBUTEROL SULFATE
     Indication: Cough
     Dosage: INHALATION AEROSOL
     Dates: start: 20221001, end: 20221004
  31. ALBUTEROL SULFATE [Concomitant]
     Active Substance: ALBUTEROL SULFATE
     Dates: start: 20221209, end: 20221210
  32. LEVETIRACETAM [Concomitant]
     Active Substance: LEVETIRACETAM

REACTIONS (1)
  - Seizure [Not Recovered/Not Resolved]

NARRATIVE: CASE EVENT DATE: 20221122
